FAERS Safety Report 8260250-3 (Version None)
Quarter: 2012Q2

REPORT INFORMATION
  Report Type: 
  Country: None (occurrence: None)
  Receive Date: 20120404
  Receipt Date: 20120329
  Transmission Date: 20120825
  Serious: No
  Sender: FDA-Public Use
  Company Number: US-PFIZER INC-2012081053

PATIENT

DRUGS (3)
  1. LYRICA [Suspect]
     Dosage: 50 MG, 3X/DAY
     Route: 048
     Dates: start: 20120301
  2. LYRICA [Suspect]
     Indication: PAIN OF SKIN
     Dosage: 50 MG, 2X/DAY
     Route: 048
     Dates: end: 20120301
  3. LYRICA [Suspect]
     Indication: FACIAL PAIN
     Dosage: UNK
     Route: 048

REACTIONS (4)
  - FACIAL PAIN [None]
  - PAIN OF SKIN [None]
  - DRUG INEFFECTIVE [None]
  - MUSCLE TWITCHING [None]
